FAERS Safety Report 5812078-9 (Version None)
Quarter: 2008Q3

REPORT INFORMATION
  Report Type: 
  Country: None (occurrence: None)
  Receive Date: 20080716
  Receipt Date: 20080709
  Transmission Date: 20090109
  Serious: Yes (Other)
  Sender: FDA-Public Use
  Company Number: US-BOEHRINGER INGELHEIM GMBH, GERMANY-2008-BP-10690BP

PATIENT
  Sex: Female

DRUGS (2)
  1. MICARDIS HCT [Suspect]
     Indication: HYPERTENSION
     Route: 048
     Dates: start: 20080101, end: 20080101
  2. LEVOXYL [Concomitant]
     Indication: HYPOTHYROIDISM

REACTIONS (3)
  - LICHEN PLANUS [None]
  - PALPITATIONS [None]
  - TACHYCARDIA [None]
